FAERS Safety Report 24426573 (Version 1)
Quarter: 2024Q4

REPORT INFORMATION
  Report Type: Spontaneous
  Country: US (occurrence: None)
  Receive Date: 20241010
  Receipt Date: 20241010
  Transmission Date: 20250115
  Serious: Yes (Other)
  Sender: Public
  Company Number: None

PATIENT
  Sex: Female

DRUGS (2)
  1. AFINITOR DISPERZ [Suspect]
     Active Substance: EVEROLIMUS
     Dosage: FREQUENCY : DAILY;?OTHER ROUTE : G-TUBE ;?
     Route: 050
     Dates: start: 202408
  2. EPIDIOLEX ORAL SOLN [Concomitant]

REACTIONS (2)
  - Product use issue [None]
  - Seizure [None]
